FAERS Safety Report 6846971-5 (Version None)
Quarter: 2010Q3

REPORT INFORMATION
  Report Type: 
  Country: None (occurrence: None)
  Receive Date: 20100713
  Receipt Date: 20100628
  Transmission Date: 20110219
  Serious: Yes (Other)
  Sender: FDA-Public Use
  Company Number: A-US2010-36211

PATIENT
  Age: 73 Year
  Sex: Female

DRUGS (18)
  1. VENTAVIS [Suspect]
     Indication: PULMONARY HYPERTENSION
     Dosage: 5 UG, 3 X DAY, RESPIRATORY, UNK UG, 4 X DAY, RESPIRATORY, 2.5 UG, 3 X DAY, RESPIRATORY
     Route: 055
     Dates: start: 20100101
  2. VENTAVIS [Suspect]
     Indication: PULMONARY HYPERTENSION
     Dosage: 5 UG, 3 X DAY, RESPIRATORY, UNK UG, 4 X DAY, RESPIRATORY, 2.5 UG, 3 X DAY, RESPIRATORY
     Route: 055
     Dates: start: 20100129
  3. VENTAVIS [Suspect]
     Indication: PULMONARY HYPERTENSION
     Dosage: 5 UG, 3 X DAY, RESPIRATORY, UNK UG, 4 X DAY, RESPIRATORY, 2.5 UG, 3 X DAY, RESPIRATORY
     Route: 055
     Dates: start: 20100426
  4. ASPIRIN [Concomitant]
  5. METOPROLOL SUCCINATE [Concomitant]
  6. TORSEMIDE [Concomitant]
  7. KALINOR-RETARD P (POTASSIUM CHLORIDE) [Concomitant]
  8. XIPAMID (XIPAMIDE) [Concomitant]
  9. SPIRONOLACTONE [Concomitant]
  10. AMBRISENTAN (AMBRISENTAN) [Concomitant]
  11. MYFORTIC [Concomitant]
  12. PREDNISOL (PREDNISOLONE SODIUM PHOSPHATE) [Concomitant]
  13. PANTOPRAZOLE SODIUM [Concomitant]
  14. METOCLOPRAMIDE [Concomitant]
  15. DIMENHYDRINATE [Concomitant]
  16. OXYGEN (OXYGEN) [Concomitant]
  17. MAGNESIUM (MAGNESIUM) [Concomitant]
  18. PRAVASTATIN [Concomitant]

REACTIONS (1)
  - ANAL HAEMORRHAGE [None]
